FAERS Safety Report 7128671-X (Version None)
Quarter: 2010Q4

REPORT INFORMATION
  Report Type: 
  Country: None (occurrence: None)
  Receive Date: 20101130
  Receipt Date: 20101119
  Transmission Date: 20110411
  Serious: Yes (Other)
  Sender: FDA-Public Use
  Company Number: GB-TEVA-256829ISR

PATIENT
  Age: 62 Year
  Sex: Male

DRUGS (3)
  1. DICLOFENAC [Suspect]
  2. CODEINE [Suspect]
  3. PARACETAMOL [Suspect]

REACTIONS (9)
  - ACQUIRED DIAPHRAGMATIC EVENTRATION [None]
  - ATELECTASIS [None]
  - CREPITATIONS [None]
  - DIAPHRAGMATIC PARALYSIS [None]
  - DIZZINESS [None]
  - HAEMATEMESIS [None]
  - MALLORY-WEISS SYNDROME [None]
  - NERVE STIMULATION TEST ABNORMAL [None]
  - ORTHOPNOEA [None]
